FAERS Safety Report 5735747-8 (Version None)
Quarter: 2008Q2

REPORT INFORMATION
  Report Type: 
  Country: None (occurrence: None)
  Receive Date: 20080513
  Receipt Date: 20080507
  Transmission Date: 20081010
  Serious: Yes (Life-Threatening)
  Sender: FDA-Public Use
  Company Number: JP-BAYER-200810493BYL

PATIENT
  Age: 84 Year
  Sex: Female

DRUGS (7)
  1. CIPROXAN-I.V. [Suspect]
     Indication: PNEUMONIA
     Dosage: TOTAL DAILY DOSE: 300 MG  UNIT DOSE: 300 MG
     Route: 041
     Dates: start: 20080304, end: 20080304
  2. OMEPRAZOLE [Concomitant]
     Indication: DRUG USE FOR UNKNOWN INDICATION
     Dosage: TOTAL DAILY DOSE: 40 MG
     Route: 042
     Dates: start: 20080304, end: 20080311
  3. TWINPAL [Concomitant]
     Indication: DRUG USE FOR UNKNOWN INDICATION
     Dosage: UNIT DOSE: 500 ML
     Route: 042
     Dates: start: 20071114, end: 20080314
  4. VITAMEDIN [Concomitant]
     Indication: DRUG USE FOR UNKNOWN INDICATION
     Route: 065
  5. VITACIMIN [Concomitant]
     Indication: DRUG USE FOR UNKNOWN INDICATION
     Route: 065
  6. LASIX [Concomitant]
     Indication: DRUG USE FOR UNKNOWN INDICATION
     Route: 065
  7. PENMALIN [Concomitant]
     Indication: DRUG USE FOR UNKNOWN INDICATION
     Route: 065

REACTIONS (1)
  - HYPOGLYCAEMIA [None]
